FAERS Safety Report 24661418 (Version 2)
Quarter: 2025Q1

REPORT INFORMATION
  Report Type: Spontaneous
  Country: AE (occurrence: AE)
  Receive Date: 20241125
  Receipt Date: 20250123
  Transmission Date: 20250408
  Serious: Yes (Other)
  Sender: PFIZER
  Company Number: AE-PFIZER INC-PV202400151694

PATIENT
  Age: 75 Year
  Sex: Female

DRUGS (5)
  1. IBRANCE [Suspect]
     Active Substance: PALBOCICLIB
     Route: 048
     Dates: start: 202409, end: 20241115
  2. IBRANCE [Suspect]
     Active Substance: PALBOCICLIB
     Route: 048
     Dates: start: 202411, end: 202412
  3. IBRANCE [Suspect]
     Active Substance: PALBOCICLIB
     Dates: start: 202412, end: 202501
  4. IBRANCE [Suspect]
     Active Substance: PALBOCICLIB
  5. CARBIMAZOLE [Concomitant]
     Active Substance: CARBIMAZOLE

REACTIONS (1)
  - Immunodeficiency [Recovering/Resolving]
